FAERS Safety Report 7714931-8 (Version None)
Quarter: 2011Q3

REPORT INFORMATION
  Report Type: 
  Country: None (occurrence: None)
  Receive Date: 20110829
  Receipt Date: 20110421
  Transmission Date: 20111222
  Serious: No
  Sender: FDA-Public Use
  Company Number: US-GLAXOSMITHKLINE-A0924821A

PATIENT
  Age: 69 Year
  Sex: Female
  Weight: 62.7 kg

DRUGS (4)
  1. ACYCLOVIR [Suspect]
     Indication: APHTHOUS STOMATITIS
     Dosage: 1APP FIVE TIMES PER DAY
     Route: 061
     Dates: start: 20110208
  2. FOLGARD [Concomitant]
  3. NIASPAN [Concomitant]
  4. BENICAR [Concomitant]

REACTIONS (2)
  - PRODUCT QUALITY ISSUE [None]
  - DRUG INEFFECTIVE [None]
